FAERS Safety Report 24941353 (Version 1)
Quarter: 2025Q1

REPORT INFORMATION
  Report Type: Spontaneous
  Country: US (occurrence: None)
  Receive Date: 20250206
  Receipt Date: 20250206
  Transmission Date: 20250409
  Serious: Yes (Hospitalization)
  Sender: FDA-CTU
  Company Number: None

PATIENT
  Age: 78 Year
  Sex: Female

DRUGS (12)
  1. ADEMPAS [Suspect]
     Active Substance: RIOCIGUAT
     Indication: Pulmonary hypertension
     Dosage: FREQUENCY : 3 TIMES A DAY;?
     Route: 048
     Dates: start: 20180309
  2. FUROSEMIDE [Concomitant]
     Active Substance: FUROSEMIDE
  3. ALBUTEROL SULFATE [Concomitant]
     Active Substance: ALBUTEROL SULFATE
  4. PANTOPRAZOLE [Concomitant]
     Active Substance: PANTOPRAZOLE
  5. METFORMIN [Concomitant]
     Active Substance: METFORMIN HYDROCHLORIDE
  6. FAMOTIDINE [Concomitant]
     Active Substance: FAMOTIDINE
  7. ATORVASTATIN [Concomitant]
     Active Substance: ATORVASTATIN
  8. PRADAXA [Concomitant]
     Active Substance: DABIGATRAN ETEXILATE MESYLATE
  9. FLUCONAZOLE [Concomitant]
     Active Substance: FLUCONAZOLE
  10. LOSARTAN [Concomitant]
     Active Substance: LOSARTAN
  11. LEVOTHYROXINE [Concomitant]
     Active Substance: LEVOTHYROXINE
  12. PATADAY OPHT DROP [Concomitant]

REACTIONS (3)
  - Fatigue [None]
  - Urinary tract infection [None]
  - Sepsis [None]

NARRATIVE: CASE EVENT DATE: 20250120
